FAERS Safety Report 23442458 (Version 2)
Quarter: 2024Q1

REPORT INFORMATION
  Report Type: Spontaneous
  Country: BR (occurrence: BR)
  Receive Date: 20240125
  Receipt Date: 20240129
  Transmission Date: 20240410
  Serious: Yes (Hospitalization)
  Sender: FDA-Public Use
  Company Number: BR-002147023-NVSC2024BR011409

PATIENT
  Sex: Female
  Weight: 77 kg

DRUGS (6)
  1. KISQALI [Suspect]
     Active Substance: RIBOCICLIB
     Indication: Breast cancer
     Dosage: 200 MG, (63 COATED TABLETS) (3 TABLETS A DAY PER 21 DAYS AND PAUSE 7 DAYS)
     Route: 065
     Dates: start: 20231225
  2. GLIFAGE [Concomitant]
     Active Substance: METFORMIN HYDROCHLORIDE
     Indication: Diabetes mellitus
     Dosage: 500 MG, BID
     Route: 065
  3. METOPROLOL SUCCINATE [Concomitant]
     Active Substance: METOPROLOL SUCCINATE
     Indication: Blood pressure increased
     Dosage: 25 MG (1 TABLET AT NIGHT)
     Route: 065
  4. VENLAFAXINE [Concomitant]
     Active Substance: VENLAFAXINE HYDROCHLORIDE
     Indication: Anxiety
     Dosage: 75 MG, QD  (1 TABLET A DAY)
     Route: 065
  5. FASLODEX [Concomitant]
     Active Substance: FULVESTRANT
     Indication: Chemotherapy
     Dosage: UNK (1 APPLICATION EVERY 28 DAYS)
     Route: 065
  6. XGEVA [Concomitant]
     Active Substance: DENOSUMAB
     Indication: Pathological fracture
     Dosage: UNK (1 APPLICATION EVERY 28 DAYS)
     Route: 065

REACTIONS (11)
  - Neutropenia [Recovering/Resolving]
  - Platelet count decreased [Unknown]
  - Immunodeficiency [Unknown]
  - Fatigue [Unknown]
  - Headache [Unknown]
  - Abdominal pain upper [Unknown]
  - Diarrhoea [Unknown]
  - Nausea [Unknown]
  - Vomiting [Unknown]
  - Decreased appetite [Unknown]
  - Weight decreased [Unknown]
